FAERS Safety Report 7650133-1 (Version None)
Quarter: 2011Q3

REPORT INFORMATION
  Report Type: 
  Country: None (occurrence: None)
  Receive Date: 20110802
  Receipt Date: 20110725
  Transmission Date: 20111222
  Serious: Yes (Other)
  Sender: FDA-Public Use
  Company Number: US-ROCHE-752088

PATIENT
  Sex: Female
  Weight: 47.6 kg

DRUGS (4)
  1. ACCUTANE [Suspect]
     Indication: ACNE
     Route: 065
     Dates: start: 19980101, end: 19990101
  2. ACCUTANE [Suspect]
     Route: 065
     Dates: start: 20030109, end: 20030209
  3. LORTAB [Concomitant]
  4. ALPRAZOLAM [Concomitant]

REACTIONS (5)
  - DEPRESSION [None]
  - GASTROINTESTINAL INJURY [None]
  - INTESTINAL OBSTRUCTION [None]
  - POST-TRAUMATIC STRESS DISORDER [None]
  - COLITIS ULCERATIVE [None]
